FAERS Safety Report 5380515-2 (Version None)
Quarter: 2007Q3

REPORT INFORMATION
  Report Type: 
  Country: None (occurrence: None)
  Receive Date: 20070703
  Receipt Date: 20070618
  Transmission Date: 20080115
  Serious: Yes (Other)
  Sender: FDA-Public Use
  Company Number: S07-NLD-02014-01

PATIENT
  Age: 22 Year
  Sex: Male

DRUGS (3)
  1. LEXAPRO [Suspect]
     Indication: DEPRESSION
     Dosage: 10 MG QD PO
     Route: 048
     Dates: start: 20070503, end: 20070503
  2. IBUPROFEN [Concomitant]
  3. VITAMINS NOS [Concomitant]

REACTIONS (8)
  - BODY TEMPERATURE INCREASED [None]
  - DIZZINESS [None]
  - FEELING ABNORMAL [None]
  - GASTROINTESTINAL HAEMORRHAGE [None]
  - HYPERHIDROSIS [None]
  - NAUSEA [None]
  - TREMOR [None]
  - VISUAL DISTURBANCE [None]
